FAERS Safety Report 9296397 (Version 1)
Quarter: 2013Q2

REPORT INFORMATION
  Report Type: Spontaneous
  Country: US (occurrence: US)
  Receive Date: 20130517
  Receipt Date: 20130517
  Transmission Date: 20140414
  Serious: No
  Sender: FDA-Public Use
  Company Number: US-009507513-1305USA009913

PATIENT
  Age: 92 Year
  Sex: Female

DRUGS (3)
  1. PRINIVIL [Suspect]
     Indication: SYSTOLIC DYSFUNCTION
     Dosage: 10 MG, QD
     Route: 048
  2. PRINIVIL [Suspect]
     Dosage: 20 MG, QD
     Route: 048
  3. TRAZODONE HYDROCHLORIDE [Concomitant]

REACTIONS (1)
  - Hallucination, visual [Recovered/Resolved]
